FAERS Safety Report 7051734-4 (Version None)
Quarter: 2010Q4

REPORT INFORMATION
  Report Type: 
  Country: None (occurrence: None)
  Receive Date: 20101019
  Receipt Date: 20100928
  Transmission Date: 20110411
  Serious: Yes (Hospitalization, Other)
  Sender: FDA-Public Use
  Company Number: PHFR2010GB04380

PATIENT
  Age: 88 Year
  Sex: Male

DRUGS (8)
  1. RIVASTIGMINE [Suspect]
     Dosage: 3 MG, BID
     Route: 048
     Dates: start: 20100903, end: 20100917
  2. WARFARIN SODIUM [Interacting]
     Indication: ATRIAL FIBRILLATION
     Route: 065
  3. DIGOXIN [Concomitant]
  4. HYDROCORTISONE CREAM [Concomitant]
  5. NULYTELY [Concomitant]
  6. TRAZODONE HYDROCHLORIDE [Concomitant]
  7. ZOPICLONE [Concomitant]
  8. ASPIRIN [Concomitant]

REACTIONS (4)
  - CONTUSION [None]
  - DRUG INTERACTION [None]
  - EPISTAXIS [None]
  - INTERNATIONAL NORMALISED RATIO INCREASED [None]
